FAERS Safety Report 14576273 (Version 5)
Quarter: 2018Q2

REPORT INFORMATION
  Report Type: Other
  Country: DE (occurrence: DE)
  Receive Date: 20180227
  Receipt Date: 20180614
  Transmission Date: 20180711
  Serious: Yes (Other)
  Sender: FDA-Public Use
  Company Number: DE-LUPIN PHARMACEUTICALS INC.-2018-01215

PATIENT
  Sex: Male

DRUGS (16)
  1. SIMVASTATIN TABLETS [Suspect]
     Active Substance: SIMVASTATIN
     Indication: PRODUCT USED FOR UNKNOWN INDICATION
     Dosage: UNK
     Route: 065
  2. PANTOPRAZOL                        /01263201/ [Interacting]
     Active Substance: PANTOPRAZOLE
     Dosage: 40 MG, BID (ONE TABLET IN THE MORNING AND ONE TABLET AT NIGHT FOR 2 WEEKS)
     Route: 065
  3. CANDESARTAN CILEXETIL AND HYDROCHLOROTHIAZIDE [Interacting]
     Active Substance: CANDESARTAN CILEXETIL\HYDROCHLOROTHIAZIDE
     Indication: PRODUCT USED FOR UNKNOWN INDICATION
     Dosage: 1 DF, QD (16 MG/12.5 MG, ONE TABLET DAILY AT NIGHT)
     Route: 065
  4. BISOPROLOL [Interacting]
     Active Substance: BISOPROLOL
     Indication: PRODUCT USED FOR UNKNOWN INDICATION
     Dosage: 1 DF, QD (ONE TABLET DAILY IN THE MORNING)
     Route: 065
  5. SPIRIVA [Interacting]
     Active Substance: TIOTROPIUM BROMIDE MONOHYDRATE
     Indication: PRODUCT USED FOR UNKNOWN INDICATION
     Dosage: 2.5 MCG, PRN
     Route: 065
  6. SIMVASTATIN TABLETS [Suspect]
     Active Substance: SIMVASTATIN
     Dosage: 20 MG, QD (ONE TABLET DAILY IN THE MORNING)
     Route: 065
  7. SPIRONOLACTON HEXAL [Interacting]
     Active Substance: SPIRONOLACTONE
     Indication: PRODUCT USED FOR UNKNOWN INDICATION
     Dosage: 50 MG, QD (ONE TABLET DAILY IN MORNING)
     Route: 065
  8. SPIRONOLACTON HEXAL [Interacting]
     Active Substance: SPIRONOLACTONE
     Dosage: 6 MG, QD
     Route: 065
  9. SPIRONOLACTON HEXAL [Interacting]
     Active Substance: SPIRONOLACTONE
     Dosage: UNK
     Route: 065
  10. GLIMEPIRID [Interacting]
     Active Substance: GLIMEPIRIDE
     Indication: PRODUCT USED FOR UNKNOWN INDICATION
     Dosage: 6 MG, QD (ONE TABLET DAILY IN THE MORNING)
     Route: 065
  11. SPIRIVA [Interacting]
     Active Substance: TIOTROPIUM BROMIDE MONOHYDRATE
     Indication: PRODUCT USED FOR UNKNOWN INDICATION
     Dosage: 2.5 UG, AS NECESSARY
     Route: 065
  12. ASPIRIN                            /00002701/ [Interacting]
     Active Substance: ASPIRIN
     Indication: PRODUCT USED FOR UNKNOWN INDICATION
     Dosage: 1 DF, QD (ONE TABLET DAILY IN THE MORNING)
     Route: 065
  13. MIFLONIDE [Interacting]
     Active Substance: BUDESONIDE
     Indication: PRODUCT USED FOR UNKNOWN INDICATION
     Dosage: 400 MCG, PRN
     Route: 065
  14. FORADIL [Interacting]
     Active Substance: FORMOTEROL FUMARATE
     Indication: PRODUCT USED FOR UNKNOWN INDICATION
     Dosage: 12 MCG, PRN (AS NECESSARY)
     Route: 065
  15. PANTOPRAZOL                        /01263201/ [Interacting]
     Active Substance: PANTOPRAZOLE
     Indication: PRODUCT USED FOR UNKNOWN INDICATION
     Dosage: 40 MG, QD (ONE TABLET IN THE MORNING)
     Route: 065
  16. L-THYROXINE                        /00068001/ [Interacting]
     Active Substance: LEVOTHYROXINE
     Indication: PRODUCT USED FOR UNKNOWN INDICATION
     Dosage: 50 ?G, QD
     Route: 065

REACTIONS (2)
  - Drug interaction [Unknown]
  - Blood glucose increased [Unknown]
